FAERS Safety Report 7926323-7 (Version None)
Quarter: 2011Q4

REPORT INFORMATION
  Report Type: 
  Country: None (occurrence: None)
  Receive Date: 20111118
  Receipt Date: 20111117
  Transmission Date: 20120403
  Serious: No
  Sender: FDA-Public Use
  Company Number: US-BIOGENIDEC-2011BI013190

PATIENT
  Age: 36 Year
  Sex: Female

DRUGS (4)
  1. AVONEX [Concomitant]
     Indication: MULTIPLE SCLEROSIS
     Route: 030
  2. TYSABRI [Suspect]
     Indication: MULTIPLE SCLEROSIS
     Route: 042
     Dates: start: 20110304
  3. TYSABRI [Suspect]
     Route: 042
     Dates: start: 20090202, end: 20090410
  4. TYSABRI [Suspect]
     Route: 042
     Dates: start: 20110301

REACTIONS (4)
  - BLOOD GLUCOSE INCREASED [None]
  - GLYCOSYLATED HAEMOGLOBIN INCREASED [None]
  - NASOPHARYNGITIS [None]
  - FATIGUE [None]
